FAERS Safety Report 21436744 (Version 1)
Quarter: 2022Q4

REPORT INFORMATION
  Report Type: Spontaneous
  Country: CN (occurrence: CN)
  Receive Date: 20221010
  Receipt Date: 20221010
  Transmission Date: 20230113
  Serious: Yes (Hospitalization, Other)
  Sender: FDA-Public Use
  Company Number: CN-009507513-2210CHN000213

PATIENT
  Age: 62 Year
  Sex: Female

DRUGS (3)
  1. CILASTATIN SODIUM\IMIPENEM [Suspect]
     Active Substance: CILASTATIN SODIUM\IMIPENEM
     Indication: Anti-infective therapy
     Dosage: 1.0 G, Q8H
     Route: 041
     Dates: start: 20210303, end: 20210304
  2. CEFTIZOXIME SODIUM [Suspect]
     Active Substance: CEFTIZOXIME SODIUM
     Indication: Anti-infective therapy
     Dosage: (SINOPHARM ZHIJUN [SHENZHEN]) 3.0G, Q8H
     Route: 041
     Dates: start: 20210305, end: 20210306
  3. PIPERACILLIN AND TAZOBACTAM [Concomitant]
     Active Substance: PIPERACILLIN SODIUM\TAZOBACTAM SODIUM
     Indication: Anti-infective therapy
     Dosage: 4.5G, Q8H
     Route: 041
     Dates: start: 20210303, end: 20210303

REACTIONS (4)
  - Delirium [Recovering/Resolving]
  - Disorganised speech [Recovering/Resolving]
  - Blood pressure abnormal [Unknown]
  - Blood glucose abnormal [Unknown]

NARRATIVE: CASE EVENT DATE: 20210305
